FAERS Safety Report 23249095 (Version 1)
Quarter: 2023Q4

REPORT INFORMATION
  Report Type: Spontaneous
  Country: FR (occurrence: FR)
  Receive Date: 20231201
  Receipt Date: 20231201
  Transmission Date: 20240109
  Serious: Yes (Hospitalization, Other)
  Sender: FDA-Public Use
  Company Number: FR-AFSSAPS-TS2023001433

PATIENT
  Age: 44 Year
  Sex: Female
  Weight: 73 kg

DRUGS (1)
  1. TENOFOVIR DISOPROXIL [Suspect]
     Active Substance: TENOFOVIR DISOPROXIL
     Indication: Infection prophylaxis
     Dosage: 245 MILLIGRAM, ONCE A DAY
     Route: 048
     Dates: start: 20230901, end: 20231107

REACTIONS (1)
  - Renal tubular disorder [Recovering/Resolving]

NARRATIVE: CASE EVENT DATE: 20230923
